FAERS Safety Report 18236119 (Version 3)
Quarter: 2021Q1

REPORT INFORMATION
  Report Type: Spontaneous
  Country: US (occurrence: US)
  Receive Date: 20200906
  Receipt Date: 20210311
  Transmission Date: 20210419
  Serious: No
  Sender: FDA-Public Use
  Company Number: US-DECIPHERA PHARMACEUTICALS LLC-2020-US-000332

PATIENT
  Sex: Female

DRUGS (3)
  1. QINLOCK [Suspect]
     Active Substance: RIPRETINIB
     Dosage: 150 MILLIGRAM, QD
     Route: 048
     Dates: start: 20200731
  2. QINLOCK [Suspect]
     Active Substance: RIPRETINIB
     Indication: MALIGNANT CONNECTIVE TISSUE NEOPLASM
     Dosage: 150 MILLIGRAM, QD
     Route: 048
     Dates: start: 20200731
  3. QINLOCK [Suspect]
     Active Substance: RIPRETINIB
     Dosage: 100 MILLIGRAM, QD
     Route: 048
     Dates: start: 20200731

REACTIONS (9)
  - Hyperkeratosis [Unknown]
  - Product use in unapproved indication [Unknown]
  - Hypertension [Unknown]
  - Muscle spasms [Unknown]
  - Stress [Unknown]
  - Gingival bleeding [Unknown]
  - Therapy change [Unknown]
  - Product administration interrupted [Unknown]
  - Pain in extremity [Unknown]
